FAERS Safety Report 18250408 (Version 3)
Quarter: 2020Q4

REPORT INFORMATION
  Report Type: Spontaneous
  Country: FR (occurrence: FR)
  Receive Date: 20200909
  Receipt Date: 20201014
  Transmission Date: 20210113
  Serious: Yes (Death, Other)
  Sender: FDA-Public Use
  Company Number: FR-BAUSCH-BL-2020-025716

PATIENT
  Age: 71 Year
  Sex: Male

DRUGS (7)
  1. LORAZEPAM. [Suspect]
     Active Substance: LORAZEPAM
     Indication: PRODUCT USED FOR UNKNOWN INDICATION
     Dosage: 1 (UNIT NOT SPECIFIED)
     Route: 048
  2. RUPATADINE ARROW [Interacting]
     Active Substance: RUPATADINE FUMARATE
     Indication: RHINITIS ALLERGIC
     Route: 048
     Dates: start: 20200525, end: 20200528
  3. MONTELUKAST [Interacting]
     Active Substance: MONTELUKAST SODIUM
     Indication: PRODUCT USED FOR UNKNOWN INDICATION
     Dosage: 1 (UNIT NOT SPECIFIED)
     Route: 048
  4. TAMSULOSIN [Interacting]
     Active Substance: TAMSULOSIN
     Dosage: 1 (UNIT NOT SPECIFIED)
     Route: 048
  5. ZOLPIDEM [Interacting]
     Active Substance: ZOLPIDEM TARTRATE
     Dosage: 1 (UNIT NOT SPECIFIED)
     Route: 048
  6. TAMSULOSIN [Interacting]
     Active Substance: TAMSULOSIN
     Indication: PRODUCT USED FOR UNKNOWN INDICATION
     Route: 048
  7. ZOLPIDEM [Interacting]
     Active Substance: ZOLPIDEM TARTRATE
     Indication: PRODUCT USED FOR UNKNOWN INDICATION
     Route: 048

REACTIONS (2)
  - Death [Fatal]
  - Drug interaction [Unknown]

NARRATIVE: CASE EVENT DATE: 20200528
